FAERS Safety Report 14412609 (Version 1)
Quarter: 2018Q1

REPORT INFORMATION
  Report Type: Spontaneous
  Country: JP (occurrence: JP)
  Receive Date: 20180119
  Receipt Date: 20180119
  Transmission Date: 20180509
  Serious: Yes (Death)
  Sender: FDA-Public Use
  Company Number: JP-CELGENEUS-JPN-20171210095

PATIENT
  Age: 66 Year
  Sex: Male

DRUGS (5)
  1. REVLIMID [Suspect]
     Active Substance: LENALIDOMIDE
     Indication: PLASMA CELL MYELOMA
     Dosage: UNKNOWN
     Route: 048
  2. REVLIMID [Suspect]
     Active Substance: LENALIDOMIDE
     Dosage: UNKNOWN
     Route: 048
     Dates: start: 20171222, end: 20171227
  3. LENADEX [Suspect]
     Active Substance: DEXAMETHASONE ACETATE
     Dosage: UNKNOWN
     Route: 048
     Dates: start: 20171222, end: 20171227
  4. DARZALEX [Suspect]
     Active Substance: DARATUMUMAB
     Indication: PLASMA CELL MYELOMA
     Dosage: UNKNOWN
     Route: 041
     Dates: start: 20171222, end: 201712
  5. LENADEX [Suspect]
     Active Substance: DEXAMETHASONE ACETATE
     Indication: PLASMA CELL MYELOMA
     Dosage: UNKNOWN
     Route: 048

REACTIONS (2)
  - Plasma cell myeloma [Fatal]
  - Platelet count decreased [Not Recovered/Not Resolved]

NARRATIVE: CASE EVENT DATE: 20171222
